FAERS Safety Report 11285476 (Version 1)
Quarter: 2015Q3

REPORT INFORMATION
  Report Type: Spontaneous
  Country: US (occurrence: US)
  Receive Date: 20150720
  Receipt Date: 20150720
  Transmission Date: 20151125
  Serious: Yes (Hospitalization, Other)
  Sender: FDA-Public Use
  Company Number: CHPA2015US008407

PATIENT
  Age: 54 Year
  Sex: Female

DRUGS (3)
  1. TRANSDERM SCOP [Suspect]
     Active Substance: SCOPOLAMINE
     Indication: MOTION SICKNESS
     Dosage: UNK
     Route: 065
     Dates: start: 201504, end: 201504
  2. TRANSDERM SCOP [Suspect]
     Active Substance: SCOPOLAMINE
     Dosage: UNK
     Route: 065
     Dates: start: 20150502, end: 20150505
  3. TRANSDERM SCOP [Suspect]
     Active Substance: SCOPOLAMINE
     Dosage: UNK
     Route: 065
     Dates: start: 20150509, end: 20150601

REACTIONS (21)
  - Tremor [Recovering/Resolving]
  - Malaise [Not Recovered/Not Resolved]
  - Diverticulitis [Unknown]
  - Dizziness [Recovered/Resolved]
  - Discomfort [Not Recovered/Not Resolved]
  - Somnolence [Not Recovered/Not Resolved]
  - Memory impairment [Not Recovered/Not Resolved]
  - Motion sickness [Recovered/Resolved]
  - Bruxism [Not Recovered/Not Resolved]
  - Dyskinesia [Not Recovered/Not Resolved]
  - Dysarthria [Recovering/Resolving]
  - Hyperhidrosis [Recovering/Resolving]
  - Confusional state [Not Recovered/Not Resolved]
  - Headache [Recovering/Resolving]
  - Abdominal pain upper [Not Recovered/Not Resolved]
  - Drug withdrawal syndrome [Not Recovered/Not Resolved]
  - Abdominal distension [Not Recovered/Not Resolved]
  - Paraesthesia [Not Recovered/Not Resolved]
  - Dizziness [Not Recovered/Not Resolved]
  - Vision blurred [Not Recovered/Not Resolved]
  - Vomiting [Recovered/Resolved]

NARRATIVE: CASE EVENT DATE: 201504
